FAERS Safety Report 8119655-3 (Version None)
Quarter: 2012Q1

REPORT INFORMATION
  Report Type: 
  Country: None (occurrence: None)
  Receive Date: 20120207
  Receipt Date: 20111226
  Transmission Date: 20120608
  Serious: Yes (Hospitalization)
  Sender: FDA-Public Use
  Company Number: FR-MERCK-1108FRA00012

PATIENT
  Age: 84 Year
  Sex: Male
  Weight: 74 kg

DRUGS (12)
  1. ZOPICLONE [Concomitant]
     Route: 048
  2. CLOPIDOGREL BISULFATE [Concomitant]
     Route: 048
  3. FOSAMAX PLUS D [Concomitant]
     Route: 048
  4. TRUSOPT [Concomitant]
     Route: 047
  5. GLYBURIDE [Suspect]
     Indication: TYPE 2 DIABETES MELLITUS
     Route: 048
     Dates: end: 20110307
  6. FLUVASTATIN SODIUM [Concomitant]
     Route: 048
  7. ACETAMINOPHEN [Concomitant]
     Route: 048
  8. JANUVIA [Suspect]
     Indication: TYPE 2 DIABETES MELLITUS
     Route: 048
     Dates: end: 20110307
  9. TAMSULOSIN HYDROCHLORIDE [Concomitant]
     Route: 048
  10. VENLAFAXINE HYDROCHLORIDE [Concomitant]
     Route: 048
  11. IRBESARTAN [Concomitant]
     Route: 048
  12. LEUCOVORIN CALCIUM [Concomitant]
     Route: 048

REACTIONS (3)
  - HYPOGLYCAEMIA [None]
  - MALAISE [None]
  - HYDROCEPHALUS [None]
